FAERS Safety Report 24569832 (Version 1)
Quarter: 2024Q4

REPORT INFORMATION
  Report Type: Spontaneous
  Country: US (occurrence: None)
  Receive Date: 20241031
  Receipt Date: 20241031
  Transmission Date: 20250115
  Serious: Yes (Life-Threatening, Hospitalization, Disabling)
  Sender: Public
  Company Number: None

PATIENT
  Age: 81 Year
  Sex: Female
  Weight: 65.7 kg

DRUGS (8)
  1. CELECOXIB [Suspect]
     Active Substance: CELECOXIB
     Indication: Arthralgia
     Dosage: FREQUENCY : TWICE A DAY;?
     Route: 048
     Dates: start: 20240827, end: 20240828
  2. CELECOXIB [Suspect]
     Active Substance: CELECOXIB
     Indication: Procedural pain
  3. TELMISARTAN [Concomitant]
     Active Substance: TELMISARTAN
  4. GLUCOSAMINE [Concomitant]
     Active Substance: GLUCOSAMINE
  5. atonal [Concomitant]
  6. lamsoprazole [Concomitant]
  7. CALCIUM [Concomitant]
     Active Substance: CALCIUM
  8. VITAMIN D [Concomitant]
     Active Substance: VITAMIN D NOS

REACTIONS (2)
  - Knee arthroplasty [None]
  - Myocardial infarction [None]

NARRATIVE: CASE EVENT DATE: 20240828
